FAERS Safety Report 9129393 (Version 6)
Quarter: 2013Q4

REPORT INFORMATION
  Report Type: Spontaneous
  Country: US (occurrence: US)
  Receive Date: 20130228
  Receipt Date: 20131025
  Transmission Date: 20140711
  Serious: Yes (Other)
  Sender: FDA-Public Use
  Company Number: US-PFIZER INC-2013071656

PATIENT
  Age: 74 Year
  Sex: Female
  Weight: 65.31 kg

DRUGS (3)
  1. LYRICA [Suspect]
     Indication: DIABETIC NEUROPATHY
     Dosage: UNK
     Dates: start: 201307, end: 201308
  2. LIPITOR [Suspect]
     Dosage: UNK
  3. METFORMIN [Suspect]
     Indication: DIABETES MELLITUS
     Dosage: 20 MG, DAILY

REACTIONS (7)
  - Hypersensitivity [Not Recovered/Not Resolved]
  - Rash [Not Recovered/Not Resolved]
  - Erythema [Not Recovered/Not Resolved]
  - Pruritus [Not Recovered/Not Resolved]
  - Pain [Not Recovered/Not Resolved]
  - Malaise [Unknown]
  - Activities of daily living impaired [Unknown]
